FAERS Safety Report 6399179-4 (Version None)
Quarter: 2009Q4

REPORT INFORMATION
  Report Type: 
  Country: None (occurrence: None)
  Receive Date: 20091008
  Receipt Date: 20090923
  Transmission Date: 20100525
  Serious: Yes (Hospitalization)
  Sender: FDA-Public Use
  Company Number: 001922

PATIENT
  Sex: Male

DRUGS (10)
  1. ROTIGOTINE (ROTIGOTINE) [Suspect]
     Indication: PARKINSON'S DISEASE
     Dosage: (4.5MG -36.0MG/DAY TRANSDERMAL), (31.5 MG QD TRANSDERMAL), (27 MG TRANSDERMAL)
     Route: 062
     Dates: start: 20081201, end: 20090222
  2. ROTIGOTINE (ROTIGOTINE) [Suspect]
     Indication: PARKINSON'S DISEASE
     Dosage: (4.5MG -36.0MG/DAY TRANSDERMAL), (31.5 MG QD TRANSDERMAL), (27 MG TRANSDERMAL)
     Route: 062
     Dates: start: 20090223, end: 20090301
  3. ROTIGOTINE (ROTIGOTINE) [Suspect]
     Indication: PARKINSON'S DISEASE
     Dosage: (4.5MG -36.0MG/DAY TRANSDERMAL), (31.5 MG QD TRANSDERMAL), (27 MG TRANSDERMAL)
     Route: 062
     Dates: start: 20090302
  4. ATENOLOL [Concomitant]
  5. ERYTHROMYCIN ETHYLSUCCINATE [Concomitant]
  6. HERBALS NOS W/VITAMINS NOS [Concomitant]
  7. TEPRENONE [Concomitant]
  8. FLURBIPROFEN [Concomitant]
  9. BETAMETHASONE VALERATE [Concomitant]
  10. HEPARIN [Concomitant]

REACTIONS (5)
  - BLOOD PRESSURE DECREASED [None]
  - DEHYDRATION [None]
  - PALLOR [None]
  - SNORING [None]
  - UNRESPONSIVE TO STIMULI [None]
